FAERS Safety Report 10947479 (Version 1)
Quarter: 2015Q1

REPORT INFORMATION
  Report Type: Spontaneous
  Country: US (occurrence: US)
  Receive Date: 20150323
  Receipt Date: 20150323
  Transmission Date: 20150721
  Serious: Yes (Other)
  Sender: FDA-Public Use
  Company Number: US-BAYER-2015-038994

PATIENT
  Sex: Male

DRUGS (2)
  1. PREDNISONE. [Concomitant]
     Active Substance: PREDNISONE
     Indication: BRONCHITIS
     Dosage: A FIVE DAYS COURSE
     Dates: start: 20130311
  2. AVELOX [Suspect]
     Active Substance: MOXIFLOXACIN HYDROCHLORIDE
     Indication: BRONCHITIS
     Dosage: A SEVEN DAYS COURSE
     Dates: start: 20130311

REACTIONS (15)
  - Hypoaesthesia [Not Recovered/Not Resolved]
  - Pain [Not Recovered/Not Resolved]
  - Discomfort [None]
  - Activities of daily living impaired [Not Recovered/Not Resolved]
  - Anxiety [None]
  - Sensorimotor disorder [Not Recovered/Not Resolved]
  - Pain in extremity [Not Recovered/Not Resolved]
  - Gait disturbance [Not Recovered/Not Resolved]
  - Emotional distress [None]
  - Anhedonia [None]
  - Paraesthesia [Not Recovered/Not Resolved]
  - Injury [None]
  - Neuropathy peripheral [Not Recovered/Not Resolved]
  - Burning sensation [Not Recovered/Not Resolved]
  - Dysstasia [Not Recovered/Not Resolved]

NARRATIVE: CASE EVENT DATE: 2013
